FAERS Safety Report 14529206 (Version 1)
Quarter: 2018Q1

REPORT INFORMATION
  Report Type: Spontaneous
  Country: US (occurrence: US)
  Receive Date: 20180213
  Receipt Date: 20180213
  Transmission Date: 20180509
  Serious: No
  Sender: FDA-Public Use
  Company Number: None

PATIENT
  Age: 20 Year
  Sex: Female

DRUGS (1)
  1. OCREVUS [Suspect]
     Active Substance: OCRELIZUMAB
     Indication: MULTIPLE SCLEROSIS
     Dosage: 300MG DAY 1+15 IV
     Route: 042
     Dates: start: 20171023, end: 20171023

REACTIONS (4)
  - Malaise [None]
  - Pain [None]
  - Headache [None]
  - Pyrexia [None]

NARRATIVE: CASE EVENT DATE: 20171023
